FAERS Safety Report 5626398-4 (Version None)
Quarter: 2008Q1

REPORT INFORMATION
  Report Type: 
  Country: None (occurrence: None)
  Receive Date: 20080214
  Receipt Date: 20080111
  Transmission Date: 20080703
  Serious: Yes (Hospitalization)
  Sender: FDA-Public Use
  Company Number: US-ROCHE-540941

PATIENT
  Age: 74 Year
  Sex: Female
  Weight: 73 kg

DRUGS (3)
  1. CAPECITABINE [Suspect]
     Dosage: 1950 MG, BID
     Route: 048
     Dates: start: 20070518
  2. BLINDED BEVACIZUMAB [Suspect]
     Dosage: 1200 MG, Q3W
     Route: 042
     Dates: start: 20070518
  3. BLINDED PLACEBO [Suspect]
     Dosage: 1200 MG, Q3W
     Route: 042
     Dates: start: 20070518

REACTIONS (1)
  - HERPES OESOPHAGITIS [None]
